FAERS Safety Report 14846692 (Version 1)
Quarter: 2018Q2

REPORT INFORMATION
  Report Type: Spontaneous
  Country: US (occurrence: US)
  Receive Date: 20180419
  Receipt Date: 20180419
  Transmission Date: 20180711
  Serious: Yes (Other)
  Sender: FDA-Public Use
  Company Number: None

PATIENT
  Age: 24 Year
  Sex: Female
  Weight: 58.5 kg

DRUGS (5)
  1. VITAMIN K2 [Concomitant]
     Active Substance: MENAQUINONE 6
  2. RAYOS [Suspect]
     Active Substance: PREDNISONE
     Indication: INFLAMMATION
     Dosage: ?          QUANTITY:4 TABLET(S);?
     Route: 048
     Dates: start: 20180413, end: 20180415
  3. VITAMIN D3 [Concomitant]
     Active Substance: CHOLECALCIFEROL
  4. NORCO [Concomitant]
     Active Substance: ACETAMINOPHEN\HYDROCODONE BITARTRATE
  5. ACETAMINOPHEN. [Concomitant]
     Active Substance: ACETAMINOPHEN

REACTIONS (2)
  - Gastrointestinal pain [None]
  - Faecaloma [None]

NARRATIVE: CASE EVENT DATE: 20180414
